FAERS Safety Report 4413862-9 (Version None)
Quarter: 2004Q3

REPORT INFORMATION
  Report Type: 
  Country: None (occurrence: None)
  Receive Date: 20040728
  Receipt Date: 20040715
  Transmission Date: 20050211
  Serious: Yes (Other)
  Sender: FDA-Public Use
  Company Number: CA-JNJFOC-20040704880

PATIENT
  Age: 41 Year
  Sex: Male
  Weight: 75 kg

DRUGS (1)
  1. REMICADE [Suspect]
     Dosage: 380 MG, INTRAVENOUS
     Route: 042
     Dates: start: 20040715

REACTIONS (9)
  - CHEST PAIN [None]
  - CYANOSIS [None]
  - DRUG HYPERSENSITIVITY [None]
  - FEELING ABNORMAL [None]
  - FLUSHING [None]
  - HYPERTENSION [None]
  - HYPERVENTILATION [None]
  - INFUSION RELATED REACTION [None]
  - TACHYCARDIA [None]
